FAERS Safety Report 9524758 (Version 1)
Quarter: 2013Q1

REPORT INFORMATION
  Report Type: Spontaneous
  Country: US (occurrence: None)
  Receive Date: 20130314
  Receipt Date: 20130314
  Transmission Date: 20140127
  Serious: No
  Sender: FDA-Public Use
  Company Number: 1301USA002883

PATIENT
  Age: 55 Year
  Sex: Male

DRUGS (7)
  1. VICTRELIS (BOCEPREVIR) CAPSULE, 200MG [Suspect]
     Indication: HEPATITIS C
     Route: 048
     Dates: start: 20121113
  2. PEGINTRON (PEGINTERFERON ALFA-2B) POWDER FOR INJECTION, 150/0.5 [Suspect]
  3. RIBASPHERE (RIBAVIRIN) [Concomitant]
  4. METHADONE HYDROCHLORIDE (METHADONE HYDROCHLORIDE) [Concomitant]
  5. IBUPROFEN (IBUPROFEN) [Concomitant]
  6. ONDANSETRON (ONDANSETRON) [Concomitant]
  7. DOXYCYCLINE (DOXYCYCLINE) [Concomitant]

REACTIONS (2)
  - Influenza like illness [None]
  - Nausea [None]
